FAERS Safety Report 7937076-0 (Version None)
Quarter: 2011Q4

REPORT INFORMATION
  Report Type: 
  Country: None (occurrence: None)
  Receive Date: 20111123
  Receipt Date: 20111114
  Transmission Date: 20120403
  Serious: Yes (Hospitalization)
  Sender: FDA-Public Use
  Company Number: JP-ACTELION-A-JP2007-16069

PATIENT
  Sex: Female
  Weight: 60 kg

DRUGS (12)
  1. TRACLEER [Suspect]
     Indication: PULMONARY ARTERIAL HYPERTENSION
     Dosage: 62.5 MG, TID
     Route: 048
     Dates: start: 20050915, end: 20070524
  2. FUROSEMIDE [Concomitant]
  3. DILTIAZEM HCL [Concomitant]
  4. NICORANDIL [Concomitant]
  5. URSODIOL [Concomitant]
  6. TRACLEER [Suspect]
     Dosage: 62.5 MG, BID
     Route: 048
     Dates: start: 20050801, end: 20050914
  7. OXYGEN [Concomitant]
  8. BERAPROST SODIUM [Concomitant]
  9. TRACLEER [Suspect]
     Dosage: 62.5 MG, BID
     Route: 048
     Dates: start: 20070525, end: 20070530
  10. PREDNISOLONE [Concomitant]
  11. ASPIRIN [Concomitant]
  12. SPIRONOLACTONE [Concomitant]

REACTIONS (7)
  - LIVER DISORDER [None]
  - BLOOD BILIRUBIN INCREASED [None]
  - JAUNDICE CHOLESTATIC [None]
  - BILIRUBIN CONJUGATED INCREASED [None]
  - BLOOD ALKALINE PHOSPHATASE INCREASED [None]
  - GAMMA-GLUTAMYLTRANSFERASE INCREASED [None]
  - BRONCHITIS [None]
